FAERS Safety Report 4762279-6 (Version None)
Quarter: 2005Q3

REPORT INFORMATION
  Report Type: 
  Country: None (occurrence: None)
  Receive Date: 20050907
  Receipt Date: 20050829
  Transmission Date: 20060218
  Serious: Yes (Death, Hospitalization)
  Sender: FDA-Public Use
  Company Number: DE-BOEHRINGER INGELHEIM PHARMACEUTICALS, INC.-2005-DE-03455DE

PATIENT
  Sex: Male
  Weight: 80 kg

DRUGS (2)
  1. MICARDIS HCT [Suspect]
     Indication: HYPERTENSION
     Dosage: 40 MG TELMISARTAN, 12,5 MG HCT
     Route: 048
     Dates: start: 20050103
  2. ASPIRIN [Concomitant]
     Route: 048

REACTIONS (27)
  - ABDOMINAL NEOPLASM [None]
  - ALANINE AMINOTRANSFERASE [None]
  - ANGIOPATHY [None]
  - ASPARTATE AMINOTRANSFERASE INCREASED [None]
  - BENIGN PROSTATIC HYPERPLASIA [None]
  - BLOOD ALKALINE PHOSPHATASE INCREASED [None]
  - BLOOD BILIRUBIN INCREASED [None]
  - BLOOD CREATININE INCREASED [None]
  - BLOOD URIC ACID INCREASED [None]
  - BRONCHIAL CARCINOMA [None]
  - DEATH [None]
  - DEMENTIA ALZHEIMER'S TYPE [None]
  - ELECTROENCEPHALOGRAM ABNORMAL [None]
  - ESCHERICHIA INFECTION [None]
  - GAMMA-GLUTAMYLTRANSFERASE INCREASED [None]
  - GENERAL PHYSICAL HEALTH DETERIORATION [None]
  - HALLUCINATION, VISUAL [None]
  - LYMPHOCYTE PERCENTAGE DECREASED [None]
  - MENTAL STATUS CHANGES [None]
  - METASTATIC BRONCHIAL CARCINOMA [None]
  - MYOCLONUS [None]
  - NEUROENDOCRINE CARCINOMA OF THE SKIN [None]
  - PLATELET COUNT DECREASED [None]
  - PNEUMONIA [None]
  - URETERIC STENOSIS [None]
  - URINARY RETENTION [None]
  - URINARY TRACT INFECTION [None]
